FAERS Safety Report 5029014-8 (Version None)
Quarter: 2006Q2

REPORT INFORMATION
  Report Type: 
  Country: None (occurrence: None)
  Receive Date: 20060613
  Receipt Date: 20060530
  Transmission Date: 20061013
  Serious: Yes (Life-Threatening, Hospitalization)
  Sender: FDA-Public Use
  Company Number: 2006RR-02481

PATIENT
  Age: 39 Year
  Sex: Female
  Weight: 90 kg

DRUGS (4)
  1. METFORMIN HCL [Suspect]
     Indication: DIABETES MELLITUS NON-INSULIN-DEPENDENT
     Dosage: 2.5 G, QD, ORAL
     Route: 048
     Dates: end: 20060512
  2. ATENOLOL TABLETS (ATENOLOL) [Concomitant]
  3. BENDROFLUAZIDE (BENDROFLUMETHIAZIDE) [Concomitant]
  4. DOXAZOSIN (DOXAZOSIN) [Concomitant]

REACTIONS (2)
  - LACTIC ACIDOSIS [None]
  - RENAL FAILURE ACUTE [None]
